FAERS Safety Report 13888174 (Version 1)
Quarter: 2017Q3

REPORT INFORMATION
  Report Type: Spontaneous
  Country: US (occurrence: US)
  Receive Date: 20170821
  Receipt Date: 20170821
  Transmission Date: 20171127
  Serious: Yes (Life-Threatening, Hospitalization)
  Sender: FDA-Public Use
  Company Number: US-SA-2017SA152935

PATIENT
  Age: 68 Year
  Sex: Male

DRUGS (1)
  1. BCG FOR IMMUNOTHERAPY [Suspect]
     Active Substance: BACILLUS CALMETTE-GUERIN ANTIGEN, UNSPECIFIED SUBSTRAIN
     Indication: BLADDER CANCER
     Route: 043
     Dates: start: 20150807, end: 20150807

REACTIONS (10)
  - Hypoxia [Unknown]
  - Transaminases increased [Unknown]
  - Alveolitis allergic [Unknown]
  - Condition aggravated [Unknown]
  - Pyrexia [Unknown]
  - Sepsis [Unknown]
  - Shock [Unknown]
  - Pneumonitis [Unknown]
  - Acute kidney injury [Unknown]
  - Dyspnoea [Unknown]

NARRATIVE: CASE EVENT DATE: 201508
